FAERS Safety Report 8486961-2 (Version None)
Quarter: 2012Q3

REPORT INFORMATION
  Report Type: 
  Country: None (occurrence: None)
  Receive Date: 20120704
  Receipt Date: 20120622
  Transmission Date: 20120928
  Serious: Yes (Other)
  Sender: FDA-Public Use
  Company Number: US-RB-041767-12

PATIENT
  Age: 31 Year
  Sex: Female

DRUGS (2)
  1. CIALIS [Suspect]
     Indication: ERECTILE DYSFUNCTION
     Dosage: DOSING DETAILS UNKNOWN
     Route: 065
     Dates: end: 20120622
  2. SUBOXONE [Suspect]
     Indication: DRUG DEPENDENCE
     Route: 065
     Dates: end: 20120622

REACTIONS (2)
  - ABORTION SPONTANEOUS [None]
  - EXPOSURE VIA SEMEN [None]
